FAERS Safety Report 5119687-3 (Version None)
Quarter: 2006Q4

REPORT INFORMATION
  Report Type: 
  Country: None (occurrence: None)
  Receive Date: 20061003
  Receipt Date: 20060920
  Transmission Date: 20070319
  Serious: Yes (Hospitalization)
  Sender: FDA-Public Use
  Company Number: JP-AVENTIS-200619781GDDC

PATIENT
  Age: 46 Year
  Sex: Female
  Weight: 47 kg

DRUGS (2)
  1. LEVOFLOXACIN [Suspect]
     Indication: HAEMATURIA
     Route: 048
     Dates: start: 20060719, end: 20060729
  2. ALLEGRA [Suspect]
     Indication: RASH
     Route: 048
     Dates: start: 20060719, end: 20060723

REACTIONS (4)
  - GENERALISED ERYTHEMA [None]
  - HAEMATURIA [None]
  - HEPATIC FUNCTION ABNORMAL [None]
  - URINARY TRACT INFECTION [None]
